FAERS Safety Report 16941620 (Version 1)
Quarter: 2019Q4

REPORT INFORMATION
  Report Type: Spontaneous
  Country: DK (occurrence: DK)
  Receive Date: 20191021
  Receipt Date: 20191021
  Transmission Date: 20200122
  Serious: Yes (Hospitalization)
  Sender: FDA-Public Use
  Company Number: DK-HTU-2019DK019680

PATIENT
  Age: 81 Year
  Sex: Female

DRUGS (3)
  1. AKYNZEO [Suspect]
     Active Substance: NETUPITANT\PALONOSETRON HYDROCHLORIDE
     Indication: PROPHYLAXIS OF NAUSEA AND VOMITING
     Dosage: STYRKE: 300 MG / 0,5 MG. DOSIS: 1 KAPSEL 1 TIME F?R CARBOPLATIN OG NAVELBINE BEHANDLING.
     Route: 048
     Dates: start: 20190826
  2. NAVELBINE [Interacting]
     Active Substance: VINORELBINE TARTRATE
     Indication: NON-SMALL CELL LUNG CANCER
     Dosage: UNK
     Route: 048
     Dates: start: 20190826, end: 20190902
  3. CARBOPLATIN ^ACCORD^ [Suspect]
     Active Substance: CARBOPLATIN
     Indication: NON-SMALL CELL LUNG CANCER
     Dosage: 306 MILLIGRAM
     Route: 042
     Dates: start: 20190826, end: 20190826

REACTIONS (6)
  - Drug interaction [Unknown]
  - Stomatitis [Unknown]
  - Abdominal pain [Unknown]
  - Neutropenia [Recovered/Resolved]
  - Constipation [Unknown]
  - Diarrhoea [Recovered/Resolved]

NARRATIVE: CASE EVENT DATE: 20190906
